FAERS Safety Report 24565123 (Version 1)
Quarter: 2024Q4

REPORT INFORMATION
  Report Type: Spontaneous
  Country: US (occurrence: US)
  Receive Date: 20241030
  Receipt Date: 20241030
  Transmission Date: 20250114
  Serious: Yes (Death, Other)
  Sender: SPECGX
  Company Number: US-SPECGX-T202402123

PATIENT
  Age: 3 Year
  Sex: Female

DRUGS (1)
  1. FENTANYL TRANSDERMAL SYSTEM [Suspect]
     Active Substance: FENTANYL
     Indication: Product used for unknown indication
     Dosage: UNK
     Route: 062

REACTIONS (22)
  - Brain death [Fatal]
  - Brain oedema [Fatal]
  - Intracranial pressure increased [Fatal]
  - Papilloedema [Fatal]
  - Unresponsive to stimuli [Fatal]
  - Accidental exposure to product by child [Fatal]
  - Miosis [Fatal]
  - Hypotension [Fatal]
  - Cyanosis [Fatal]
  - Coma scale abnormal [Fatal]
  - Accidental overdose [Fatal]
  - Respiratory failure [Fatal]
  - Resuscitation [Unknown]
  - Endotracheal intubation [Unknown]
  - Blood sodium increased [Unknown]
  - Blood chloride increased [Unknown]
  - Blood bicarbonate decreased [Unknown]
  - Alanine aminotransferase increased [Unknown]
  - Aspartate aminotransferase increased [Unknown]
  - Blood bilirubin decreased [Unknown]
  - Blood potassium decreased [Unknown]
  - Blood calcium decreased [Unknown]
